FAERS Safety Report 13503383 (Version 1)
Quarter: 2017Q2

REPORT INFORMATION
  Report Type: Report from Study
  Country: None (occurrence: BR)
  Receive Date: 20170502
  Receipt Date: 20170502
  Transmission Date: 20170830
  Serious: Yes (Other)
  Sender: FDA-Public Use
  Company Number: BR-ABBVIE-15K-020-1493689-00

PATIENT
  Sex: Female
  Weight: 78.5 kg

DRUGS (21)
  1. HUMIRA [Suspect]
     Active Substance: ADALIMUMAB
     Dosage: LOADING DOSE
     Route: 058
     Dates: start: 2015, end: 2015
  2. TROPINAL [Concomitant]
     Indication: PAIN
     Dosage: 1 TABLET EVERY 6 OR 8 HOURS
     Route: 048
  3. ABLOK PLUS [Concomitant]
     Active Substance: ATENOLOL\CHLORTHALIDONE
     Indication: HYPERTENSION
     Dosage: FORM STRENGTH: 12.5 MG CHLORTHALIDONE + 50 MG ATENOLOL
     Route: 048
     Dates: start: 2013
  4. ABLOK PLUS [Concomitant]
     Active Substance: ATENOLOL\CHLORTHALIDONE
     Indication: PROPHYLAXIS
  5. HUMIRA [Suspect]
     Active Substance: ADALIMUMAB
     Indication: COLITIS ULCERATIVE
     Dosage: LOADING DOSE
     Route: 058
     Dates: start: 20150619, end: 20150619
  6. HUMIRA [Suspect]
     Active Substance: ADALIMUMAB
     Dosage: MAINTENANCE DOSE
     Route: 058
     Dates: start: 2015
  7. SEAKALM [Concomitant]
     Indication: CRYING
  8. SIMETHICONE (DIMETHICONE) [Concomitant]
     Active Substance: DIMETHICONE
     Indication: FLATULENCE
     Dosage: 1 TEASPOON DAILY
     Route: 048
     Dates: start: 2012
  9. TIBOLONE [Concomitant]
     Active Substance: TIBOLONE
     Indication: HORMONE REPLACEMENT THERAPY
     Route: 048
  10. TIBOLONE [Concomitant]
     Active Substance: TIBOLONE
     Indication: HORMONE REPLACEMENT THERAPY
     Route: 048
     Dates: start: 1998
  11. ABLOK PLUS [Concomitant]
     Active Substance: ATENOLOL\CHLORTHALIDONE
     Indication: BLOOD PRESSURE ABNORMAL
     Dosage: FORM STRENGTH: 12.5 + 25 MG
     Route: 048
     Dates: start: 2011
  12. MEFENAMIC ACID. [Suspect]
     Active Substance: MEFENAMIC ACID
     Indication: ABDOMINAL PAIN
     Dosage: UNTIL 3 TABLETS DAILY
     Route: 048
     Dates: start: 201608
  13. TROPINAL [Concomitant]
     Indication: PAIN
     Dosage: 1 TABLET EVERY 6 OR 8 HOURS
     Route: 048
  14. TROPINAL [Concomitant]
     Indication: ABDOMINAL PAIN
  15. SEAKALM [Concomitant]
     Indication: ANXIETY
     Route: 048
  16. LEXOTAN [Concomitant]
     Active Substance: BROMAZEPAM
     Indication: SLEEP DISORDER THERAPY
     Route: 048
  17. MEFENAMIC ACID. [Suspect]
     Active Substance: MEFENAMIC ACID
     Indication: ARTHRALGIA
  18. LEXOTAN [Concomitant]
     Active Substance: BROMAZEPAM
     Indication: INSOMNIA
     Route: 048
  19. TROPINAL [Concomitant]
     Indication: COLITIS ULCERATIVE
     Route: 048
  20. OMEPRAZOLE. [Concomitant]
     Active Substance: OMEPRAZOLE
     Indication: GASTRIC DISORDER
     Route: 048
  21. OMEPRAZOLE. [Concomitant]
     Active Substance: OMEPRAZOLE
     Indication: PROPHYLAXIS

REACTIONS (14)
  - Blood cholesterol abnormal [Not Recovered/Not Resolved]
  - Faecaloma [Unknown]
  - Intestinal obstruction [Unknown]
  - Obstructive defaecation [Not Recovered/Not Resolved]
  - Malabsorption [Unknown]
  - Rectal ulcer [Unknown]
  - Stress [Unknown]
  - Asthenia [Unknown]
  - Fatigue [Unknown]
  - Faeces hard [Not Recovered/Not Resolved]
  - Constipation [Not Recovered/Not Resolved]
  - Immunodeficiency [Not Recovered/Not Resolved]
  - Influenza [Unknown]
  - Abdominal pain [Not Recovered/Not Resolved]

NARRATIVE: CASE EVENT DATE: 2015
